FAERS Safety Report 20370226 (Version 2)
Quarter: 2022Q3

REPORT INFORMATION
  Report Type: Spontaneous
  Country: AT (occurrence: None)
  Receive Date: 20220124
  Receipt Date: 20220804
  Transmission Date: 20221027
  Serious: Yes (Other)
  Sender: FDA-Public Use
  Company Number: AT-ROCHE-3004697

PATIENT
  Sex: Male

DRUGS (1)
  1. HEMLIBRA [Suspect]
     Active Substance: EMICIZUMAB-KXWH
     Indication: Product used for unknown indication
     Dosage: 2-WEEK REGIME OF HEMLIBRA
     Route: 065
     Dates: start: 202011

REACTIONS (2)
  - Haemarthrosis [Unknown]
  - Drug ineffective [Unknown]
